FAERS Safety Report 4689732-8 (Version None)
Quarter: 2005Q2

REPORT INFORMATION
  Report Type: 
  Country: None (occurrence: None)
  Receive Date: 20050613
  Receipt Date: 20050613
  Transmission Date: 20051028
  Serious: Yes (Disabling)
  Sender: FDA-Public Use
  Company Number: None

PATIENT
  Age: 54 Year
  Sex: Male
  Weight: 86.1834 kg

DRUGS (6)
  1. ZICAM-COLD REMEDY MTRIX INITIATIVES, INC [Suspect]
     Indication: NASOPHARYNGITIS
     Dosage: ONE SPRAY ONCE NASAL
     Route: 045
     Dates: start: 20050228
  2. ZOCOR [Concomitant]
  3. SINEMET [Concomitant]
  4. ATENOLOL [Concomitant]
  5. ASPIRIN [Concomitant]
  6. MULTI-VITAMIN [Concomitant]

REACTIONS (5)
  - AGEUSIA [None]
  - ANOSMIA [None]
  - HEADACHE [None]
  - NASAL DISCOMFORT [None]
  - RHINORRHOEA [None]
